FAERS Safety Report 4828436-5 (Version None)
Quarter: 2005Q4

REPORT INFORMATION
  Report Type: 
  Country: None (occurrence: None)
  Receive Date: 20051110
  Receipt Date: 20051027
  Transmission Date: 20060501
  Serious: Yes (Life-Threatening, Other)
  Sender: FDA-Public Use
  Company Number: 2005132749

PATIENT
  Age: 7 Year
  Sex: Male
  Weight: 19 kg

DRUGS (2)
  1. ATGAM [Suspect]
     Indication: BONE MARROW TRANSPLANT
     Dosage: 1000 MG, INTRAVENOUS
     Route: 042
     Dates: start: 20050917, end: 20050917
  2. ATGAM [Suspect]
     Indication: THALASSAEMIA
     Dosage: 1000 MG, INTRAVENOUS
     Route: 042
     Dates: start: 20050917, end: 20050917

REACTIONS (8)
  - BRONCHOSPASM [None]
  - COUGH [None]
  - CYANOSIS [None]
  - DIARRHOEA [None]
  - DYSPNOEA [None]
  - HYPOTENSION [None]
  - OXYGEN SATURATION DECREASED [None]
  - RASH [None]
